FAERS Safety Report 7654082-4 (Version None)
Quarter: 2011Q3

REPORT INFORMATION
  Report Type: 
  Country: None (occurrence: None)
  Receive Date: 20110803
  Receipt Date: 20110725
  Transmission Date: 20111222
  Serious: Yes (Other)
  Sender: FDA-Public Use
  Company Number: PHFR2011GB04418

PATIENT
  Sex: Female

DRUGS (1)
  1. CLOZAPINE [Suspect]
     Indication: SCHIZOPHRENIA
     Route: 048
     Dates: start: 20100802, end: 20110711

REACTIONS (4)
  - URINARY TRACT INFECTION [None]
  - MALAISE [None]
  - WEIGHT INCREASED [None]
  - PYREXIA [None]
